FAERS Safety Report 19921426 (Version 2)
Quarter: 2021Q4

REPORT INFORMATION
  Report Type: Spontaneous
  Country: US (occurrence: US)
  Receive Date: 20211006
  Receipt Date: 20211014
  Transmission Date: 20220303
  Serious: Yes (Other)
  Sender: FDA-Public Use
  Company Number: US-ADVANZ PHARMA-202109006535

PATIENT

DRUGS (3)
  1. HYDROXYCHLOROQUINE [Suspect]
     Active Substance: HYDROXYCHLOROQUINE
     Indication: Dermatomyositis
     Dosage: 200 MG, BID
     Route: 065
  2. OMEPRAZOLE [Concomitant]
     Active Substance: OMEPRAZOLE
     Dosage: 20 MG, BID
  3. WELLBUTRIN [Concomitant]
     Active Substance: BUPROPION HYDROCHLORIDE
     Dosage: 300 MG, QD

REACTIONS (6)
  - Retinal exudates [Recovering/Resolving]
  - Retinal haemorrhage [Recovering/Resolving]
  - Macular oedema [Recovering/Resolving]
  - Maculopathy [Recovering/Resolving]
  - Visual field defect [Recovering/Resolving]
  - Retinal degeneration [Recovering/Resolving]
